FAERS Safety Report 4961539-3 (Version None)
Quarter: 2006Q1

REPORT INFORMATION
  Report Type: 
  Country: None (occurrence: None)
  Receive Date: 20060329
  Receipt Date: 20060321
  Transmission Date: 20060701
  Serious: Yes (Life-Threatening)
  Sender: FDA-Public Use
  Company Number: 2006039536

PATIENT
  Age: 51 Year
  Sex: Male
  Weight: 109 kg

DRUGS (4)
  1. CELEBREX [Suspect]
     Indication: OSTEOARTHRITIS
     Dosage: 100 MG, ORAL
     Route: 048
     Dates: start: 20020101
  2. ACETYLSALICYLIC ACID SRT [Concomitant]
  3. ATENOLOL [Concomitant]
  4. AMLODIPINE [Concomitant]

REACTIONS (2)
  - EPILEPSY [None]
  - MIGRAINE [None]
